FAERS Safety Report 7286956-0 (Version None)
Quarter: 2011Q1

REPORT INFORMATION
  Report Type: 
  Country: None (occurrence: None)
  Receive Date: 20110211
  Receipt Date: 20110201
  Transmission Date: 20110831
  Serious: No
  Sender: FDA-Public Use
  Company Number: US-BIOGENIDEC-2010BI020606

PATIENT
  Sex: Male

DRUGS (4)
  1. TYSABRI [Suspect]
     Indication: MULTIPLE SCLEROSIS
     Route: 042
  2. TYLENOL-500 [Concomitant]
     Indication: BACK PAIN
  3. TYLENOL-500 [Concomitant]
     Indication: BONE PAIN
  4. ASPIRIN [Concomitant]
     Indication: PROPHYLAXIS

REACTIONS (10)
  - FALL [None]
  - RIB FRACTURE [None]
  - ASTHENIA [None]
  - FATIGUE [None]
  - MULTIPLE SCLEROSIS RELAPSE [None]
  - PAIN [None]
  - FACE INJURY [None]
  - SINUS DISORDER [None]
  - BONE PAIN [None]
  - BACK PAIN [None]
